FAERS Safety Report 6686008-4 (Version None)
Quarter: 2010Q2

REPORT INFORMATION
  Report Type: 
  Country: None (occurrence: None)
  Receive Date: 20100419
  Receipt Date: 20100415
  Transmission Date: 20101027
  Serious: Yes (Death, Hospitalization)
  Sender: FDA-Public Use
  Company Number: PHHY2009CA35183

PATIENT
  Sex: Female

DRUGS (2)
  1. SANDOSTATIN LAR [Suspect]
     Indication: RECTAL CANCER
     Dosage: 20 MG, QMO
     Route: 030
     Dates: start: 20090528
  2. SANDOSTATIN LAR [Suspect]
     Dosage: 40 MG, QMO
     Route: 030

REACTIONS (6)
  - CONFUSIONAL STATE [None]
  - DEATH [None]
  - DISORIENTATION [None]
  - HYPERSOMNIA [None]
  - SEPSIS [None]
  - WOUND [None]
